FAERS Safety Report 9690213 (Version 2)
Quarter: 2013Q4

REPORT INFORMATION
  Report Type: Spontaneous
  Country: JP (occurrence: JP)
  Receive Date: 20131115
  Receipt Date: 20131203
  Transmission Date: 20140711
  Serious: Yes (Other)
  Sender: FDA-Public Use
  Company Number: JP-AMGEN-JPNSP2013080676

PATIENT
  Age: 72 Year
  Sex: Female

DRUGS (6)
  1. ENBREL [Suspect]
     Indication: RHEUMATOID ARTHRITIS
     Dosage: 25 MG ONCE WEEKLY
     Route: 058
     Dates: start: 20080626, end: 20131106
  2. RHEUMATREX                         /00113802/ [Concomitant]
     Dosage: 8 MG, WEEKLY
     Dates: start: 20080626
  3. RHEUMATREX                         /00113802/ [Concomitant]
     Dosage: 6 MG, WEEKLY
  4. RHEUMATREX                         /00113802/ [Concomitant]
     Dosage: 4 MG, WEEKLY
  5. RIMATIL [Concomitant]
     Dosage: 200 MG, 2X/DAY
  6. DAIBOFUTO                          /07973501/ [Concomitant]
     Dosage: 3.5 G, 3X/DAY
     Route: 048

REACTIONS (3)
  - Colon cancer [Unknown]
  - Abdominal distension [Unknown]
  - Anaemia [Unknown]
